FAERS Safety Report 5374158-4 (Version None)
Quarter: 2007Q2

REPORT INFORMATION
  Report Type: 
  Country: None (occurrence: None)
  Receive Date: 20070627
  Receipt Date: 20070613
  Transmission Date: 20071010
  Serious: Yes (Other)
  Sender: FDA-Public Use
  Company Number: TCI2007A02869

PATIENT
  Age: 73 Year
  Sex: Female

DRUGS (6)
  1. ACTOS [Suspect]
     Indication: DIABETES MELLITUS
     Dosage: 15 MG (15 MG, 1 D (15 MG. 1-2)); PER ORAL
     Route: 048
     Dates: start: 20070124, end: 20070514
  2. ARICEPT [Suspect]
     Dosage: PER ORAL
     Route: 048
     Dates: end: 20070514
  3. METRION                    (METFORMIN HYDROCHLORIDE) [Concomitant]
  4. NATEGLINIDE [Concomitant]
  5. SAWACHION S             (NICERGOLINE) [Concomitant]
  6. LEPRINTON           (LEVODOPA, CARBIDOPA) [Concomitant]

REACTIONS (6)
  - ARRHYTHMIA [None]
  - BACK PAIN [None]
  - BLOOD CREATINE PHOSPHOKINASE INCREASED [None]
  - BLOOD POTASSIUM DECREASED [None]
  - CEREBRAL INFARCTION [None]
  - MALAISE [None]
